FAERS Safety Report 14954461 (Version 1)
Quarter: 2018Q2

REPORT INFORMATION
  Report Type: Spontaneous
  Country: US (occurrence: US)
  Receive Date: 20180530
  Receipt Date: 20180530
  Transmission Date: 20180711
  Serious: Yes (Other)
  Sender: FDA-Public Use
  Company Number: US-BAUSCH-BL-2018-015070

PATIENT
  Sex: Female

DRUGS (2)
  1. MINOCIN [Suspect]
     Active Substance: MINOCYCLINE HYDROCHLORIDE
     Dosage: ONCE DAILY ON MONDAY, WEDNESDAY AND FRIDAY
     Route: 048
     Dates: start: 201805
  2. MINOCIN [Suspect]
     Active Substance: MINOCYCLINE HYDROCHLORIDE
     Indication: RHEUMATOID ARTHRITIS
     Dosage: ONCE DAILY ON MONDAY, WEDNESDAY AND FRIDAY
     Route: 048
     Dates: start: 2016, end: 20180519

REACTIONS (4)
  - Off label use [Not Recovered/Not Resolved]
  - Surgery [Unknown]
  - Post procedural contusion [Not Recovered/Not Resolved]
  - Skin hyperpigmentation [Not Recovered/Not Resolved]

NARRATIVE: CASE EVENT DATE: 2016
